FAERS Safety Report 19705007 (Version 1)
Quarter: 2021Q3

REPORT INFORMATION
  Report Type: Spontaneous
  Country: US (occurrence: US)
  Receive Date: 20210816
  Receipt Date: 20210816
  Transmission Date: 20211014
  Serious: Yes (Disabling, Other)
  Sender: FDA-Public Use
  Company Number: None

PATIENT
  Age: 42 Year
  Sex: Female
  Weight: 81 kg

DRUGS (1)
  1. CHANTIX [Suspect]
     Active Substance: VARENICLINE TARTRATE
     Indication: SMOKING CESSATION THERAPY
     Dosage: ?          QUANTITY:53 TABLET(S);OTHER FREQUENCY:2 TIMES A DAY;?
     Route: 048

REACTIONS (23)
  - Nightmare [None]
  - Feeling hot [None]
  - Dyspnoea [None]
  - Loss of personal independence in daily activities [None]
  - SLE arthritis [None]
  - Crying [None]
  - Vomiting [None]
  - Dizziness [None]
  - Condition aggravated [None]
  - Antinuclear antibody positive [None]
  - Angina pectoris [None]
  - Asthenia [None]
  - Agitation [None]
  - Swelling [None]
  - Hypophagia [None]
  - Balance disorder [None]
  - Pain in extremity [None]
  - Illness [None]
  - Headache [None]
  - Photophobia [None]
  - Back pain [None]
  - Nausea [None]
  - Abdominal pain upper [None]

NARRATIVE: CASE EVENT DATE: 20210609
